FAERS Safety Report 4932046-9 (Version None)
Quarter: 2006Q1

REPORT INFORMATION
  Report Type: 
  Country: None (occurrence: None)
  Receive Date: 20060227
  Receipt Date: 20060209
  Transmission Date: 20060701
  Serious: Yes (Life-Threatening, Other)
  Sender: FDA-Public Use
  Company Number: 2006-DE-00742GD

PATIENT
  Sex: Female

DRUGS (13)
  1. INTERFERON GAMMA (INTERFERON GAMMA) [Suspect]
     Indication: MYCOBACTERIUM AVIUM COMPLEX INFECTION
     Dosage: SEE IMAGE
     Route: 042
     Dates: start: 20010101
  2. CLARITHROMYCIN [Suspect]
     Indication: MYCOBACTERIUM AVIUM COMPLEX INFECTION
     Dosage: 40 MG/KG
  3. ZIDOVUDINE [Suspect]
     Indication: ACQUIRED IMMUNODEFICIENCY SYNDROME
  4. INTERLEUKIN-2 (INTERLEUKIN-2) [Suspect]
     Indication: MYCOBACTERIUM AVIUM COMPLEX INFECTION
     Dosage: SEE IMAGE
     Route: 058
  5. ETHAMBUTOL (ETHAMBUTOL) [Suspect]
     Indication: MYCOBACTERIUM AVIUM COMPLEX INFECTION
  6. RIFABUTIN (RIFABUTIN) [Suspect]
     Indication: MYCOBACTERIUM AVIUM COMPLEX INFECTION
  7. CIPROFLOXACIN [Suspect]
     Indication: MYCOBACTERIUM AVIUM COMPLEX INFECTION
  8. ISONIAZID (ISONIZIAD) [Suspect]
     Indication: MYCOBACTERIUM AVIUM COMPLEX INFECTION
  9. INDINAVIR (INDINAVIR) [Suspect]
     Indication: ACQUIRED IMMUNODEFICIENCY SYNDROME
  10. AZITHROMYCIN [Concomitant]
  11. STAVUDINE [Concomitant]
  12. DIDANOSINE [Concomitant]
  13. EAVIRENZ (EFAVIRENZ) [Concomitant]

REACTIONS (10)
  - ABDOMINAL MASS [None]
  - ABDOMINAL PAIN [None]
  - ANAEMIA HAEMOLYTIC AUTOIMMUNE [None]
  - ASCITES [None]
  - BLOOD HIV RNA INCREASED [None]
  - DRUG EFFECT DECREASED [None]
  - HEPATOSPLENOMEGALY [None]
  - MALAISE [None]
  - MYCOBACTERIUM AVIUM COMPLEX INFECTION [None]
  - VOMITING [None]
